FAERS Safety Report 14579248 (Version 1)
Quarter: 2018Q1

REPORT INFORMATION
  Report Type: Spontaneous
  Country: DE (occurrence: DE)
  Receive Date: 20180227
  Receipt Date: 20180227
  Transmission Date: 20180509
  Serious: Yes (Other)
  Sender: FDA-Public Use
  Company Number: DE-OTSUKA-DJ20061211

PATIENT

DRUGS (3)
  1. ABILIFY [Suspect]
     Active Substance: ARIPIPRAZOLE
     Indication: SCHIZOPHRENIA
     Route: 065
  2. ABILIFY [Suspect]
     Active Substance: ARIPIPRAZOLE
     Indication: SCHIZOPHRENIA
     Route: 065
  3. ABILIFY [Suspect]
     Active Substance: ARIPIPRAZOLE
     Indication: SCHIZOPHRENIA
     Route: 065

REACTIONS (9)
  - Lethargy [Unknown]
  - Heart rate increased [Unknown]
  - Diarrhoea [Unknown]
  - Urinary incontinence [Unknown]
  - Coma [Unknown]
  - Parkinsonism [Unknown]
  - Consciousness fluctuating [Unknown]
  - Hyperhidrosis [Unknown]
  - Dysphagia [Unknown]
